FAERS Safety Report 4494507-9 (Version None)
Quarter: 2004Q4

REPORT INFORMATION
  Report Type: 
  Country: None (occurrence: None)
  Receive Date: 20041102
  Receipt Date: 20041020
  Transmission Date: 20050328
  Serious: Yes (Hospitalization)
  Sender: FDA-Public Use
  Company Number: 2004RL000116

PATIENT
  Age: 80 Year
  Sex: Female

DRUGS (8)
  1. RYTHMOL [Suspect]
     Dosage: 2.0 DF; QD; PO
     Route: 048
     Dates: end: 20040909
  2. PANTOPRAZOLE (PANTOPRAZOLE) [Suspect]
     Dosage: 1 DF; QD
     Dates: end: 20040909
  3. DVASMINE (BEING QUERIED) [Suspect]
     Dosage: 2 DF; QD; PO
     Route: 048
     Dates: end: 20040909
  4. ZOPICLONE (ZOPICLONE) [Suspect]
     Dosage: 1 DF; QD; PO
     Route: 048
     Dates: end: 20040909
  5. ACETYLSALICYLIC ACID SRT [Suspect]
     Dosage: 1 DF; QD; PO
     Route: 048
     Dates: end: 20040909
  6. CLOMIPRAMINE HCL [Suspect]
     Dosage: 6 DF; QD; PO
     Route: 048
     Dates: end: 20040909
  7. BETAHISTINE [Concomitant]
  8. ATORVASTATIN CALCIUM [Concomitant]

REACTIONS (2)
  - CONFUSIONAL STATE [None]
  - HYPONATRAEMIA [None]
